FAERS Safety Report 18581640 (Version 1)
Quarter: 2020Q4

REPORT INFORMATION
  Report Type: Spontaneous
  Country: US (occurrence: US)
  Receive Date: 20201009
  Receipt Date: 20201009
  Transmission Date: 20210114
  Serious: No
  Sender: FDA-Public Use
  Company Number: None

PATIENT
  Age: 8 Decade
  Sex: Female

DRUGS (1)
  1. CHLOROQUINE DIPHOSPHATE [Suspect]
     Active Substance: CHLOROQUINE PHOSPHATE
     Indication: COVID-19
     Route: 048
     Dates: start: 2020

REACTIONS (4)
  - Electrocardiogram QT prolonged [None]
  - Torsade de pointes [None]
  - Intentional product use issue [None]
  - Bradycardia [None]
